FAERS Safety Report 7353294-7 (Version None)
Quarter: 2011Q1

REPORT INFORMATION
  Report Type: 
  Country: None (occurrence: None)
  Receive Date: 20110315
  Receipt Date: 20110310
  Transmission Date: 20110831
  Serious: Yes (Other)
  Sender: FDA-Public Use
  Company Number: US-PFIZER INC-2011054105

PATIENT

DRUGS (1)
  1. TYGACIL [Suspect]
     Dosage: UNK

REACTIONS (2)
  - ENCEPHALOPATHY [None]
  - PSYCHOTIC DISORDER [None]
